FAERS Safety Report 6202099-9 (Version None)
Quarter: 2009Q2

REPORT INFORMATION
  Report Type: 
  Country: None (occurrence: None)
  Receive Date: 20090526
  Receipt Date: 20090520
  Transmission Date: 20091009
  Serious: Yes (Hospitalization)
  Sender: FDA-Public Use
  Company Number: JP-BAYER-200911639BYL

PATIENT
  Age: 69 Year
  Sex: Female
  Weight: 41 kg

DRUGS (4)
  1. NEXAVAR [Suspect]
     Indication: RENAL CELL CARCINOMA STAGE IV
     Dosage: UNIT DOSE: 200 MG
     Route: 048
     Dates: start: 20081210, end: 20081217
  2. NEXAVAR [Suspect]
     Dosage: UNIT DOSE: 200 MG
     Route: 048
     Dates: start: 20081218, end: 20081225
  3. NEXAVAR [Suspect]
     Dosage: UNIT DOSE: 200 MG
     Route: 048
     Dates: start: 20090116, end: 20090314
  4. NORVASC [Concomitant]
     Route: 048
     Dates: start: 20081101, end: 20081222

REACTIONS (5)
  - ANAEMIA [None]
  - ERYTHEMA [None]
  - HYPERCALCAEMIA [None]
  - HYPERTENSION [None]
  - MALAISE [None]
